FAERS Safety Report 5902827-3 (Version None)
Quarter: 2008Q3

REPORT INFORMATION
  Report Type: 
  Country: None (occurrence: None)
  Receive Date: 20080926
  Receipt Date: 20080922
  Transmission Date: 20090109
  Serious: Yes (Life-Threatening, Hospitalization)
  Sender: FDA-Public Use
  Company Number: 2008SP019426

PATIENT
  Sex: Female

DRUGS (4)
  1. AERIUS (DESLORATADINE) (DESLORATADINE) (5 MG) [Suspect]
     Indication: ASTHMA
     Dosage: 2 DF; PRN; PO
     Route: 048
     Dates: start: 20080701, end: 20080917
  2. AERIUS (DESLORATADINE) (DESLORATADINE) (5 MG) [Suspect]
     Indication: RHINITIS SEASONAL
     Dosage: 2 DF; PRN; PO
     Route: 048
     Dates: start: 20080701, end: 20080917
  3. INSULIN [Concomitant]
  4. DOXIUM [Concomitant]

REACTIONS (2)
  - EPILEPSY [None]
  - SHOCK HYPOGLYCAEMIC [None]
